FAERS Safety Report 4779420-1 (Version None)
Quarter: 2005Q3

REPORT INFORMATION
  Report Type: 
  Country: None (occurrence: None)
  Receive Date: 20050914
  Receipt Date: 20050221
  Transmission Date: 20060218
  Serious: Yes (Hospitalization)
  Sender: FDA-Public Use
  Company Number: 163-20785-05010133

PATIENT
  Age: 47 Year
  Sex: Male

DRUGS (3)
  1. THALOMID [Suspect]
     Indication: NON-SMALL CELL LUNG CANCER
     Dosage: DAILY, ORAL
     Route: 048
     Dates: start: 20041222, end: 20041228
  2. TAXOTERE [Suspect]
     Indication: NON-SMALL CELL LUNG CANCER
     Dosage: INTRAVENOUS
     Route: 042
     Dates: start: 20041222
  3. HEPARIN [Concomitant]

REACTIONS (9)
  - ASCITES [None]
  - DEHYDRATION [None]
  - OEDEMA [None]
  - ORAL PAIN [None]
  - ORTHOSTATIC HYPOTENSION [None]
  - PERIORBITAL OEDEMA [None]
  - PERITONEAL HAEMORRHAGE [None]
  - PORTAL HYPERTENSION [None]
  - STOMATITIS [None]
